FAERS Safety Report 9659473 (Version 3)
Quarter: 2014Q1

REPORT INFORMATION
  Report Type: Report from Study
  Country: JP (occurrence: JP)
  Receive Date: 20131031
  Receipt Date: 20140116
  Transmission Date: 20141002
  Serious: Yes (Other)
  Sender: FDA-Public Use
  Company Number: PHHY2012JP120714

PATIENT
  Age: 46 Year
  Sex: Female

DRUGS (6)
  1. FTY 720 [Suspect]
     Indication: MULTIPLE SCLEROSIS
     Dosage: 0.5 MG, QD
     Route: 048
     Dates: start: 20120622
  2. LIPOVAS [Concomitant]
     Dosage: 5 MG, UNK
     Route: 048
  3. EBRANTIL [Concomitant]
     Dosage: 60 MG, UNK
     Route: 048
  4. PURSENNID [Concomitant]
     Dosage: 36 MG, UNK
     Route: 048
  5. LOXONIN [Concomitant]
     Dosage: 60 MG, UNK
     Route: 048
  6. SELBEX [Concomitant]
     Dosage: 50 MG, UNK
     Route: 048

REACTIONS (4)
  - Nausea [Recovering/Resolving]
  - Vomiting [Recovering/Resolving]
  - White blood cell count decreased [Recovered/Resolved]
  - Hepatic function abnormal [Recovering/Resolving]
